FAERS Safety Report 9655619 (Version 2)
Quarter: 2013Q4

REPORT INFORMATION
  Report Type: Spontaneous
  Country: CN (occurrence: CN)
  Receive Date: 20131030
  Receipt Date: 20131127
  Transmission Date: 20140711
  Serious: No
  Sender: FDA-Public Use
  Company Number: CN-ASTRAZENECA-2013SE77810

PATIENT
  Age: 75 Year
  Sex: Male

DRUGS (2)
  1. LOSEC MUPS [Suspect]
     Indication: GASTRITIS
     Route: 048
     Dates: start: 201310, end: 201310
  2. FINASTERIDE [Concomitant]
     Dates: start: 201306

REACTIONS (4)
  - Decreased appetite [Not Recovered/Not Resolved]
  - Abdominal discomfort [Unknown]
  - Drug ineffective [Unknown]
  - Therapy cessation [Unknown]
